FAERS Safety Report 8477520-6 (Version None)
Quarter: 2012Q2

REPORT INFORMATION
  Report Type: 
  Country: None (occurrence: None)
  Receive Date: 20120629
  Receipt Date: 20120626
  Transmission Date: 20120825
  Serious: Yes (Life-Threatening, Hospitalization)
  Sender: FDA-Public Use
  Company Number: PHHY2012BR055281

PATIENT
  Age: 86 Year
  Sex: Female

DRUGS (2)
  1. CAPTOPRIL [Concomitant]
     Indication: CARDIAC DISORDER
  2. FORMOTEROL FUMARATE [Suspect]
     Indication: EMPHYSEMA
     Dosage: UNK UKN, UNK

REACTIONS (2)
  - DEPRESSED LEVEL OF CONSCIOUSNESS [None]
  - RESPIRATORY TRACT INFECTION [None]
